FAERS Safety Report 22615169 (Version 1)
Quarter: 2023Q2

REPORT INFORMATION
  Report Type: Spontaneous
  Country: US (occurrence: US)
  Receive Date: 20230619
  Receipt Date: 20230619
  Transmission Date: 20230721
  Serious: Yes (Hospitalization)
  Sender: FDA-Public Use
  Company Number: US-AMGEN-USASP2023101950

PATIENT
  Age: 12 Year
  Sex: Female

DRUGS (4)
  1. XGEVA [Suspect]
     Active Substance: DENOSUMAB
     Indication: Bone giant cell tumour benign
     Dosage: 120 MILLIGRAM, QWK FOR THREE WEEKS
     Route: 058
  2. XGEVA [Suspect]
     Active Substance: DENOSUMAB
     Dosage: 120 MILLIGRAM, QMO
     Route: 058
  3. VITAMIN D3 [Concomitant]
     Active Substance: CHOLECALCIFEROL
     Indication: Bone giant cell tumour benign
     Dosage: 500 UNIT, QD
     Route: 065
  4. CALCIUM CARBONATE [Concomitant]
     Active Substance: CALCIUM CARBONATE
     Indication: Bone giant cell tumour benign
     Dosage: 500 MILLIGRAM, QD
     Route: 065

REACTIONS (8)
  - Hypercalcaemia [Recovered/Resolved]
  - Acute kidney injury [Unknown]
  - Mood swings [Unknown]
  - Muscle twitching [Unknown]
  - Granuloma [Unknown]
  - Osteopetrosis [Unknown]
  - Nausea [Unknown]
  - Off label use [Unknown]
